FAERS Safety Report 17117676 (Version 2)
Quarter: 2020Q1

REPORT INFORMATION
  Report Type: Spontaneous
  Country: GR (occurrence: GR)
  Receive Date: 20191205
  Receipt Date: 20200213
  Transmission Date: 20200409
  Serious: Yes (Life-Threatening, Hospitalization)
  Sender: FDA-Public Use
  Company Number: GR-MYLANLABS-2019M1119622

PATIENT
  Age: 77 Year
  Sex: Male
  Weight: 70 kg

DRUGS (10)
  1. CARBOPLATIN. [Suspect]
     Active Substance: CARBOPLATIN
     Indication: SMALL CELL LUNG CANCER
     Dosage: 500 MG, CYCLIC (1 IN 21 DAYS)
     Route: 042
     Dates: start: 20190220, end: 20190611
  2. SODIUM CHLORIDE. [Concomitant]
     Active Substance: SODIUM CHLORIDE
     Indication: HYPONATRAEMIA
     Dosage: INTRAVENOUS HYDRATION
     Route: 042
     Dates: start: 20190402, end: 20190405
  3. ZOFRON                             /00955301/ [Concomitant]
     Active Substance: ONDANSETRON
     Indication: PREMEDICATION
     Dosage: 1 DF, CYCLIC
     Route: 042
     Dates: start: 20190220, end: 20190611
  4. DEXATON                            /00016002/ [Concomitant]
     Active Substance: DEXAMETHASONE SODIUM PHOSPHATE
     Indication: PREMEDICATION
     Dosage: 1 DF (1 AMP, (1 IN 21 DAYS))
     Route: 042
     Dates: start: 20190220, end: 20190611
  5. T4 [Concomitant]
     Active Substance: LEVOTHYROXINE
     Indication: HYPOTHYROIDISM
     Dosage: 75 MG, QD
     Route: 048
     Dates: start: 20190404
  6. FENISTIL [Concomitant]
     Active Substance: DIMETHINDENE
     Indication: PREMEDICATION
     Dosage: 1 DF, CYCLIC
     Route: 042
     Dates: start: 20190220, end: 20190611
  7. AVELUMAB [Suspect]
     Active Substance: AVELUMAB
     Indication: SMALL CELL LUNG CANCER
     Dosage: 650 MG, CYCLIC (1 IN 2 WEEKS)
     Route: 042
     Dates: start: 20190410, end: 20190620
  8. SODIUM CHLORIDE. [Concomitant]
     Active Substance: SODIUM CHLORIDE
     Dosage: INTRAVENOUS HYDRATION
     Route: 042
     Dates: start: 20190622
  9. ETOPOSIDE. [Suspect]
     Active Substance: ETOPOSIDE
     Indication: SMALL CELL LUNG CANCER
     Dosage: 180 MG, CYCLIC (1 IN 21 DAYS)
     Route: 042
     Dates: start: 20190220, end: 20190611
  10. ZANTAC [Concomitant]
     Active Substance: RANITIDINE HYDROCHLORIDE
     Indication: PREMEDICATION
     Dosage: 1 DF, EVERY 21 DAYS
     Route: 042
     Dates: start: 20190220, end: 20190611

REACTIONS (3)
  - Platelet count decreased [Recovered/Resolved]
  - Hyponatraemia [Not Recovered/Not Resolved]
  - Anaemia [Not Recovered/Not Resolved]

NARRATIVE: CASE EVENT DATE: 20190622
